FAERS Safety Report 8832489 (Version 2)
Quarter: 2013Q2

REPORT INFORMATION
  Report Type: Spontaneous
  Country: CA (occurrence: CA)
  Receive Date: 20121010
  Receipt Date: 20130409
  Transmission Date: 20140414
  Serious: Yes (Life-Threatening, Hospitalization)
  Sender: FDA-Public Use
  Company Number: CA-ELI_LILLY_AND_COMPANY-CA201210001526

PATIENT
  Age: 52 Year
  Sex: Male
  Weight: 86 kg

DRUGS (22)
  1. ADCIRCA [Suspect]
     Indication: PULMONARY HYPERTENSION
     Dosage: UNK
     Dates: start: 20120228
  2. ADCIRCA [Suspect]
     Dosage: 40 MG, QD
     Route: 048
     Dates: start: 20120312, end: 20120313
  3. ALENDRONATE [Concomitant]
     Dosage: UNK, UNKNOWN
  4. CALCIUM CARBONATE [Concomitant]
     Dosage: UNK, UNKNOWN
  5. DOCUSATE [Concomitant]
     Dosage: UNK, UNKNOWN
  6. HALOPERIDOL [Concomitant]
     Dosage: UNK, UNKNOWN
     Route: 048
  7. IMURAN [Concomitant]
     Dosage: UNK, UNKNOWN
  8. INDAPAMIDE [Concomitant]
     Dosage: UNK, UNKNOWN
  9. LACTULOSE [Concomitant]
     Dosage: UNK, UNKNOWN
  10. LEVOTHYROXINE [Concomitant]
     Dosage: UNK, UNKNOWN
     Route: 048
  11. METHIMAZOLE [Concomitant]
     Dosage: UNK, UNKNOWN
  12. NOVORAPID [Concomitant]
     Dosage: UNK, UNKNOWN
     Route: 058
  13. SODIUM POLYSTYRENE SULFONATE [Concomitant]
     Dosage: UNK, UNKNOWN
  14. SPIRONOLACTONE [Concomitant]
     Dosage: UNK, UNKNOWN
  15. SPIRONOLACTONE [Concomitant]
     Dosage: 100 MG, QD
  16. VITAMIN D [Concomitant]
     Dosage: UNK, UNKNOWN
  17. METRONIDAZOLE [Concomitant]
     Dosage: 250 MG, BID
  18. SODIUM BENZOATE [Concomitant]
     Dosage: 3 G, TID
  19. MAGNESIUM GLUTAMATE [Concomitant]
     Dosage: 1000 MG, BID
  20. LEVOCARNITINE [Concomitant]
     Dosage: 990 MG, TID
  21. FUROSEMIDE [Concomitant]
     Dosage: 20 MG, BID
     Route: 042
  22. FUROSEMIDE [Concomitant]
     Dosage: 40 MG, UNKNOWN
     Route: 048

REACTIONS (1)
  - Hyperbilirubinaemia [Not Recovered/Not Resolved]
